FAERS Safety Report 4334115-3 (Version None)
Quarter: 2004Q2

REPORT INFORMATION
  Report Type: 
  Country: None (occurrence: None)
  Receive Date: 20040405
  Receipt Date: 20040317
  Transmission Date: 20050107
  Serious: Yes (Hospitalization)
  Sender: FDA-Public Use
  Company Number: ATO-04-0242

PATIENT
  Age: 72 Year
  Sex: Male
  Weight: 96.1626 kg

DRUGS (1)
  1. TRISENOX [Suspect]
     Indication: MULTIPLE MYELOMA
     Dosage: 30 MG (30 MG, DAILY X5), IVI
     Route: 042
     Dates: start: 20040308, end: 20040312

REACTIONS (2)
  - ACUTE MYOCARDIAL INFARCTION [None]
  - MYOCARDIAL ISCHAEMIA [None]
